FAERS Safety Report 5751957-8 (Version None)
Quarter: 2008Q2

REPORT INFORMATION
  Report Type: 
  Country: None (occurrence: None)
  Receive Date: 20080529
  Receipt Date: 20080519
  Transmission Date: 20081010
  Serious: Yes (Hospitalization, Other)
  Sender: FDA-Public Use
  Company Number: PR-BAYER-200823514NA

PATIENT
  Age: 62 Year
  Sex: Female
  Weight: 52 kg

DRUGS (1)
  1. AVELOX [Suspect]
     Indication: PHARYNGEAL ERYTHEMA
     Dosage: TOTAL DAILY DOSE: 400 MG  UNIT DOSE: 400 MG
     Route: 048

REACTIONS (10)
  - ANAPHYLACTIC SHOCK [None]
  - BLISTER [None]
  - CHEST PAIN [None]
  - EYE SWELLING [None]
  - HEADACHE [None]
  - MUSCLE SPASMS [None]
  - PAIN IN EXTREMITY [None]
  - PRURITUS [None]
  - SENSORY LOSS [None]
  - WEIGHT DECREASED [None]
